FAERS Safety Report 4308937-9 (Version None)
Quarter: 2004Q1

REPORT INFORMATION
  Report Type: 
  Country: None (occurrence: None)
  Receive Date: 20040227
  Receipt Date: 20040217
  Transmission Date: 20041129
  Serious: Yes (Death)
  Sender: FDA-Public Use
  Company Number: JP-JNJFOC-20040205086

PATIENT
  Age: 59 Year
  Sex: Male

DRUGS (2)
  1. FENTANYL [Suspect]
     Indication: CANCER PAIN
     Dosage: 2.5 MG, 1 IN 3 DAY, TRANSDERMAL; 5 MG, 1 IN 3 DAY, TRANSDERMAL
     Route: 062
     Dates: start: 20040131, end: 20040205
  2. FENTANYL [Suspect]
     Indication: CANCER PAIN
     Dosage: 2.5 MG, 1 IN 3 DAY, TRANSDERMAL; 5 MG, 1 IN 3 DAY, TRANSDERMAL
     Route: 062
     Dates: start: 20040205, end: 20040206

REACTIONS (4)
  - CACHEXIA [None]
  - GASTRIC CANCER [None]
  - MALIGNANT NEOPLASM PROGRESSION [None]
  - WHITE BLOOD CELL COUNT INCREASED [None]
